FAERS Safety Report 16193317 (Version 1)
Quarter: 2019Q2

REPORT INFORMATION
  Report Type: Spontaneous
  Country: ES (occurrence: ES)
  Receive Date: 20190413
  Receipt Date: 20190413
  Transmission Date: 20190711
  Serious: Yes (Other)
  Sender: FDA-Public Use
  Company Number: ES-009507513-1904ESP004454

PATIENT
  Age: 13 Year
  Sex: Male

DRUGS (1)
  1. AERIUS (DESLORATADINE) [Suspect]
     Active Substance: DESLORATADINE
     Indication: RHINITIS ALLERGIC
     Dosage: 1 TABLET/ DAY
     Route: 048
     Dates: start: 20190328, end: 20190404

REACTIONS (3)
  - Fatigue [Recovered/Resolved]
  - Depressive symptom [Recovered/Resolved]
  - Somnolence [Recovered/Resolved]

NARRATIVE: CASE EVENT DATE: 20190331
